FAERS Safety Report 6551129-3 (Version None)
Quarter: 2010Q1

REPORT INFORMATION
  Report Type: 
  Country: None (occurrence: None)
  Receive Date: 20100121
  Receipt Date: 20100107
  Transmission Date: 20100710
  Serious: Yes (Hospitalization)
  Sender: FDA-Public Use
  Company Number: CAP09000161

PATIENT
  Age: 73 Year
  Sex: Female
  Weight: 49.9 kg

DRUGS (7)
  1. ACTONEL [Suspect]
     Indication: HIP ARTHROPLASTY
     Dosage: 35 MG ONCE WEEKLY, ORAL
     Route: 048
     Dates: start: 20090601
  2. PREVACID [Concomitant]
  3. ATIVAN [Concomitant]
  4. CALCIUM (CALCIUM) [Concomitant]
  5. EMPRACET /00020001/ (PARACETAMOL) TABLET [Concomitant]
  6. GLUCOSAMINE SULFATE (GLUCOSAMINE SULFATE) [Concomitant]
  7. MULTIVITAMINS (ASCORBIC ACID, ERGOCALCIFEROL, FOLIC ACID, NICOTINAMIDE [Concomitant]

REACTIONS (4)
  - BLOOD PRESSURE DECREASED [None]
  - DIZZINESS [None]
  - DIZZINESS POSTURAL [None]
  - LOSS OF CONSCIOUSNESS [None]
